FAERS Safety Report 16218208 (Version 1)
Quarter: 2019Q2

REPORT INFORMATION
  Report Type: Spontaneous
  Country: US (occurrence: US)
  Receive Date: 20190419
  Receipt Date: 20190419
  Transmission Date: 20190711
  Serious: Yes (Hospitalization, Other)
  Sender: FDA-Public Use
  Company Number: US-ASTRAZENECA-2019SE57959

PATIENT
  Age: 67 Year
  Sex: Male

DRUGS (2)
  1. QUETIAPINE. [Suspect]
     Active Substance: QUETIAPINE
     Indication: DELIRIUM
     Route: 048
  2. HALOPERIDOL. [Suspect]
     Active Substance: HALOPERIDOL
     Indication: DELIRIUM
     Route: 042

REACTIONS (4)
  - Parkinsonism [Recovered/Resolved]
  - Product use in unapproved indication [Unknown]
  - Delirium [Recovered/Resolved]
  - Off label use [Unknown]
